FAERS Safety Report 11524119 (Version 1)
Quarter: 2015Q3

REPORT INFORMATION
  Report Type: Spontaneous
  Country: US (occurrence: US)
  Receive Date: 20150903
  Receipt Date: 20150903
  Transmission Date: 20151125
  Serious: No
  Sender: FDA-Public Use
  Company Number: US-ELI_LILLY_AND_COMPANY-US201002006861

PATIENT
  Sex: Female

DRUGS (2)
  1. HUMALOG [Suspect]
     Active Substance: INSULIN LISPRO
  2. NOVOLIN [Concomitant]
     Active Substance: INSULIN HUMAN

REACTIONS (3)
  - Hunger [Unknown]
  - Depression [Unknown]
  - Weight increased [Unknown]
